FAERS Safety Report 5094159-3 (Version None)
Quarter: 2006Q3

REPORT INFORMATION
  Report Type: 
  Country: None (occurrence: None)
  Receive Date: 20060829
  Receipt Date: 20060818
  Transmission Date: 20061208
  Serious: Yes (Other)
  Sender: FDA-Public Use
  Company Number: DEWYE517404AUG06

PATIENT
  Age: 63 Year
  Sex: Male

DRUGS (1)
  1. TYGACIL [Suspect]
     Indication: STAPHYLOCOCCAL INFECTION
     Dosage: 50 MG 3X PER 1 DAY INTRAVENOUS
     Route: 042
     Dates: start: 20060619, end: 20060622

REACTIONS (5)
  - CONJUNCTIVITIS [None]
  - DRUG ERUPTION [None]
  - ERYTHEMA MULTIFORME [None]
  - GAMMA-GLUTAMYLTRANSFERASE INCREASED [None]
  - TRANSAMINASES INCREASED [None]
